FAERS Safety Report 23574361 (Version 1)
Quarter: 2024Q1

REPORT INFORMATION
  Report Type: Report from Study
  Country: US (occurrence: US)
  Receive Date: 20240228
  Receipt Date: 20240228
  Transmission Date: 20240409
  Serious: No
  Sender: FDA-Public Use
  Company Number: US-BIOVITRUM-2024-US-002701

PATIENT
  Age: 12 Month
  Sex: Female

DRUGS (9)
  1. SYNAGIS [Suspect]
     Active Substance: PALIVIZUMAB
     Indication: Hypoplastic left heart syndrome
     Dosage: 100 MG/ML: INJECT 15 MG PER KG IN THE MUSCLE ONCE PER MONTH  ; 50MG/0.5ML: INJECT 15MGPER KG IN THE
     Dates: start: 20231220
  2. OMEGA-3 ACIDS [Concomitant]
     Active Substance: OMEGA-3 FATTY ACIDS
     Indication: Product used for unknown indication
     Dosage: CHEWABLE GUMMIES
  3. DIGOXIN [Concomitant]
     Active Substance: DIGOXIN
     Indication: Product used for unknown indication
     Dosage: SOLUTION 50MCG/ML
  4. FAMOTIDINE [Concomitant]
     Active Substance: FAMOTIDINE
     Indication: Product used for unknown indication
     Dosage: SUSPENSION 40MG/5ML
  5. VITAMIN D3 [Concomitant]
     Active Substance: CHOLECALCIFEROL
     Indication: Product used for unknown indication
     Dosage: CHEWABLE
  6. EPINEPHRINE [Concomitant]
     Active Substance: EPINEPHRINE
     Indication: Product used for unknown indication
  7. ZINC LOZ [Concomitant]
     Indication: Product used for unknown indication
  8. ASPIRIN CHLD [Concomitant]
     Indication: Product used for unknown indication
     Dosage: CHEWABLE
  9. ENALAPRIL [Concomitant]
     Active Substance: ENALAPRIL
     Indication: Product used for unknown indication
     Dosage: SOLUTION 1MG/ML

REACTIONS (5)
  - Rash [Unknown]
  - Petechiae [Unknown]
  - Abdominal discomfort [Unknown]
  - Discomfort [Unknown]
  - Pyrexia [Unknown]
